FAERS Safety Report 6098713-1 (Version None)
Quarter: 2009Q1

REPORT INFORMATION
  Report Type: 
  Country: None (occurrence: None)
  Receive Date: 20090302
  Receipt Date: 20090218
  Transmission Date: 20090719
  Serious: Yes (Other)
  Sender: FDA-Public Use
  Company Number: JP-PFIZER INC-2009161558

PATIENT

DRUGS (2)
  1. ATARAX [Suspect]
  2. ARICEPT [Suspect]

REACTIONS (1)
  - DEMENTIA [None]
